FAERS Safety Report 17091991 (Version 1)
Quarter: 2019Q4

REPORT INFORMATION
  Report Type: Spontaneous
  Country: US (occurrence: US)
  Receive Date: 20191129
  Receipt Date: 20191129
  Transmission Date: 20200122
  Serious: No
  Sender: FDA-Public Use
  Company Number: US-UCBSA-2018007475

PATIENT
  Sex: Female

DRUGS (2)
  1. KEPPRA [Suspect]
     Active Substance: LEVETIRACETAM
     Indication: PRODUCT USED FOR UNKNOWN INDICATION
     Dosage: UNK
  2. KEPPRA [Suspect]
     Active Substance: LEVETIRACETAM
     Dosage: 750 MG, 2X/DAY (BID)

REACTIONS (7)
  - Feeling abnormal [Unknown]
  - Adverse drug reaction [Unknown]
  - Fall [Unknown]
  - Nerve injury [Unknown]
  - Seizure [Unknown]
  - Somnolence [Unknown]
  - Snoring [Unknown]
